FAERS Safety Report 20202459 (Version 4)
Quarter: 2022Q1

REPORT INFORMATION
  Report Type: Spontaneous
  Country: PL (occurrence: PL)
  Receive Date: 20211217
  Receipt Date: 20220217
  Transmission Date: 20220423
  Serious: Yes (Hospitalization, Other)
  Sender: FDA-Public Use
  Company Number: PL-Accord-247482

PATIENT
  Age: 17 Year
  Sex: Female

DRUGS (9)
  1. ARIPIPRAZOLE [Suspect]
     Active Substance: ARIPIPRAZOLE
     Indication: Schizophrenia
     Dosage: UP TO 15MG
  2. CLOZAPINE [Suspect]
     Active Substance: CLOZAPINE
     Indication: Schizophrenia
     Dosage: UP TO 300 MG/D, UP TO 375 MG/D, 125 MG/D
  3. SERTRALINE [Suspect]
     Active Substance: SERTRALINE HYDROCHLORIDE
     Indication: Depressed mood
  4. LORAZEPAM [Suspect]
     Active Substance: LORAZEPAM
     Indication: Schizophrenia
     Dosage: UP TO?3 MG/D
     Dates: start: 2019
  5. OLANZAPINE [Suspect]
     Active Substance: OLANZAPINE
     Indication: Schizophrenia
     Dosage: UP TO 15 MG/D
  6. PERAZINE [Suspect]
     Active Substance: PERAZINE
     Indication: Schizophrenia
     Dosage: UP TO 100 MG/D, LATER UP TO 500 MG/D
  7. OPIPRAMOL HYDROCHLORIDE [Suspect]
     Active Substance: OPIPRAMOL HYDROCHLORIDE
     Indication: Schizophrenia
  8. RISPERIDONE [Suspect]
     Active Substance: RISPERIDONE
     Indication: Schizophrenia
     Dosage: UP TO 2 MG/D
     Dates: start: 2019
  9. ZUCLOPENTHIXOL ACETATE [Concomitant]
     Active Substance: ZUCLOPENTHIXOL ACETATE
     Dosage: 5MG A DAY

REACTIONS (3)
  - Electroencephalogram abnormal [Unknown]
  - Drug ineffective [Unknown]
  - Seizure [Unknown]

NARRATIVE: CASE EVENT DATE: 20190101
